FAERS Safety Report 9163361 (Version 2)
Quarter: 2013Q2

REPORT INFORMATION
  Report Type: Spontaneous
  Country: US (occurrence: US)
  Receive Date: 20130314
  Receipt Date: 20130405
  Transmission Date: 20140414
  Serious: Yes (Other)
  Sender: FDA-Public Use
  Company Number: US-JNJFOC-20130302138

PATIENT
  Age: 77 Year
  Sex: Male
  Weight: 77.57 kg

DRUGS (21)
  1. XARELTO [Suspect]
     Indication: CEREBROVASCULAR ACCIDENT PROPHYLAXIS
     Route: 048
     Dates: start: 20130112, end: 20130122
  2. XARELTO [Suspect]
     Indication: ATRIAL FIBRILLATION
     Route: 048
     Dates: start: 20130112, end: 20130122
  3. ASPIRIN [Suspect]
     Indication: ATRIAL FIBRILLATION
     Route: 048
     Dates: start: 20130108
  4. PLAVIX [Suspect]
     Indication: ANTICOAGULANT THERAPY
     Route: 048
     Dates: start: 20130108
  5. CLOBETASOL PROPIONATE [Concomitant]
     Indication: ECZEMA
     Route: 061
     Dates: start: 201209
  6. AMLODIPINE [Concomitant]
     Indication: ATRIAL FIBRILLATION
     Route: 048
     Dates: start: 20130108
  7. CARVEDILOL [Concomitant]
     Indication: BLOOD PRESSURE
     Route: 048
     Dates: start: 201203
  8. CRESTOR [Concomitant]
     Indication: BLOOD CHOLESTEROL
     Route: 048
     Dates: start: 20130108
  9. GLIPIZIDE ER [Concomitant]
     Indication: DIABETES MELLITUS
     Route: 048
     Dates: start: 20130108
  10. KLOR-CON [Concomitant]
     Indication: MINERAL SUPPLEMENTATION
     Dosage: 20 MG 1/2 TABLET
     Route: 048
     Dates: start: 201206
  11. LEVOTHYROXINE [Concomitant]
     Indication: THYROID DISORDER
     Route: 048
     Dates: start: 201209
  12. LASIX [Concomitant]
     Indication: DIURETIC THERAPY
     Dosage: 20MG 2 TABLETS
     Route: 048
     Dates: start: 201206
  13. METOLAZONE [Concomitant]
     Indication: DIURETIC THERAPY
     Route: 048
     Dates: start: 20130108
  14. NITROGLYCERINE [Concomitant]
     Indication: CHEST PAIN
     Route: 060
     Dates: start: 2010
  15. PACERONE [Concomitant]
     Route: 065
  16. AMOXICILLIN/CLAVULANATE POTASSIUM [Concomitant]
     Dosage: 500-125
     Route: 065
  17. COENZYME Q [Concomitant]
     Route: 065
  18. OMEGA 3 FISH OIL [Concomitant]
     Route: 065
  19. VITAMIN D3 [Concomitant]
     Route: 065
  20. VITAMIN C [Concomitant]
     Route: 065
  21. THERA-M [Concomitant]
     Route: 065

REACTIONS (3)
  - Mucosal haemorrhage [Recovered/Resolved]
  - Cellulitis [Recovered/Resolved]
  - Blood blister [Not Recovered/Not Resolved]
